FAERS Safety Report 6448118-6 (Version None)
Quarter: 2009Q4

REPORT INFORMATION
  Report Type: 
  Country: None (occurrence: None)
  Receive Date: 20091120
  Receipt Date: 20091112
  Transmission Date: 20100525
  Serious: No
  Sender: FDA-Public Use
  Company Number: US-BAYER-200939509NA

PATIENT
  Age: 26 Year
  Sex: Female

DRUGS (1)
  1. MIRENA [Suspect]
     Indication: CONTRACEPTION
     Route: 015
     Dates: start: 20090101, end: 20091112

REACTIONS (4)
  - ALOPECIA [None]
  - DEPRESSION [None]
  - LOSS OF LIBIDO [None]
  - VAGINAL DISCHARGE [None]
